FAERS Safety Report 19393967 (Version 1)
Quarter: 2021Q2

REPORT INFORMATION
  Report Type: Spontaneous
  Country: US (occurrence: US)
  Receive Date: 20210609
  Receipt Date: 20210609
  Transmission Date: 20210717
  Serious: Yes (Death, Other)
  Sender: FDA-Public Use
  Company Number: US-GLAXOSMITHKLINE-US2021GSK120483

PATIENT
  Sex: Male

DRUGS (4)
  1. ZANTAC [Suspect]
     Active Substance: RANITIDINE HYDROCHLORIDE
     Indication: GASTROOESOPHAGEAL REFLUX DISEASE
     Dosage: UNK, 2?3 X/WEEK
     Route: 065
     Dates: start: 199701, end: 201301
  2. RANITIDINE. [Suspect]
     Active Substance: RANITIDINE
     Indication: GASTROOESOPHAGEAL REFLUX DISEASE
     Dosage: UNK, 2?3 X/WEEK
     Route: 065
     Dates: start: 199701, end: 201301
  3. RANITIDINE. [Suspect]
     Active Substance: RANITIDINE
     Indication: GASTROOESOPHAGEAL REFLUX DISEASE
     Dosage: UNK, 2?3 X/WEEK
     Route: 065
     Dates: start: 199701, end: 201301
  4. ZANTAC [Suspect]
     Active Substance: RANITIDINE HYDROCHLORIDE
     Indication: GASTROOESOPHAGEAL REFLUX DISEASE
     Dosage: UNK, 2?3 X/WEEK
     Route: 065
     Dates: start: 199701, end: 201301

REACTIONS (3)
  - Bladder cancer [Fatal]
  - Lung neoplasm malignant [Fatal]
  - Urethral cancer [Fatal]
